FAERS Safety Report 9700255 (Version 1)
Quarter: 2013Q4

REPORT INFORMATION
  Report Type: Spontaneous
  Country: GB (occurrence: None)
  Receive Date: 20131119
  Receipt Date: 20131119
  Transmission Date: 20140711
  Serious: Yes (Life-Threatening, Hospitalization)
  Sender: FDA-Public Use
  Company Number: AUR-APL-2013-09553

PATIENT
  Age: 49 Year
  Sex: Male
  Weight: 75 kg

DRUGS (11)
  1. LEVETIRACETAM [Suspect]
     Indication: EPILEPSY
     Dosage: 1000 MG (500 MG, 2 IN 1 D), ORAL
     Route: 048
     Dates: end: 20131031
  2. INDAPAMIDE (INDAPAMIDE) [Suspect]
     Indication: HYPERTENSION
     Route: 048
     Dates: end: 20131031
  3. ALLOPURINOL [Concomitant]
  4. AMLODIPINE (AMLODIPINE) [Concomitant]
  5. BISOPROLOL (BISOPROLOL) [Concomitant]
  6. FLUTICASONE FUROATE (FLUTICASONE FUROATE) [Concomitant]
  7. MEROPENEM (MEROPENEM) [Concomitant]
  8. NORADRENALINE (NOREPINEPHRINE) [Concomitant]
  9. OMEPRAZOLE (OMEPRAZOLE) [Concomitant]
  10. PROPOFOL  (PROPOFOL) [Concomitant]
  11. VANCOMYCIN (VANCOMYCIN) [Concomitant]

REACTIONS (12)
  - Renal failure acute [None]
  - Amylase increased [None]
  - Abdominal pain upper [None]
  - Somnolence [None]
  - Pancreatic pseudocyst [None]
  - Metabolic acidosis [None]
  - Constipation [None]
  - Diarrhoea [None]
  - Localised intraabdominal fluid collection [None]
  - Pancreatitis [None]
  - Portal vein thrombosis [None]
  - Vascular pseudoaneurysm [None]
